FAERS Safety Report 5464797-4 (Version None)
Quarter: 2007Q3

REPORT INFORMATION
  Report Type: 
  Country: None (occurrence: None)
  Receive Date: 20070820
  Receipt Date: 20070712
  Transmission Date: 20080115
  Serious: No
  Sender: FDA-Public Use
  Company Number: TPA2007A00820

PATIENT
  Age: 49 Year
  Sex: Male
  Weight: 88.4514 kg

DRUGS (5)
  1. ROZEREM [Suspect]
     Indication: INSOMNIA
     Dosage: 8 MG, QHS, PER ORAL
     Route: 048
     Dates: start: 20060515, end: 20060518
  2. WELLBUTRIN XL [Concomitant]
  3. ALLEGRA (FEXOFENADINE HYDROCHLORIDE) [Concomitant]
  4. LIPITOR [Concomitant]
  5. METHIMAZOLE [Concomitant]

REACTIONS (2)
  - HALLUCINATION, TACTILE [None]
  - HALLUCINATION, VISUAL [None]
